FAERS Safety Report 19921674 (Version 1)
Quarter: 2021Q4

REPORT INFORMATION
  Report Type: Report from Study
  Country: US (occurrence: US)
  Receive Date: 20211005
  Receipt Date: 20211005
  Transmission Date: 20220303
  Serious: No
  Sender: FDA-Public Use
  Company Number: US-IPSEN BIOPHARMACEUTICALS, INC.-2021-23786

PATIENT
  Sex: Male

DRUGS (1)
  1. SOMATULINE DEPOT [Suspect]
     Active Substance: LANREOTIDE ACETATE
     Indication: Neuroendocrine tumour
     Dosage: 120MG/ 0.5ML, DEEP SUBCUTANEOUS, EVERY FOUR WEEKS
     Route: 058
     Dates: start: 2017

REACTIONS (2)
  - Injection site discolouration [Recovered/Resolved]
  - Blood glucose abnormal [Recovered/Resolved]
